FAERS Safety Report 9606832 (Version 3)
Quarter: 2014Q2

REPORT INFORMATION
  Report Type: Spontaneous
  Country: US (occurrence: US)
  Receive Date: 20131008
  Receipt Date: 20140519
  Transmission Date: 20141212
  Serious: No
  Sender: FDA-Public Use
  Company Number: US-AMGEN-USASP2013052445

PATIENT
  Age: 71 Year
  Sex: Female
  Weight: 59.41 kg

DRUGS (7)
  1. PROLIA [Suspect]
     Indication: OSTEOPOROSIS POSTMENOPAUSAL
     Dosage: 60 MG, Q6MO
     Route: 058
     Dates: start: 20130214
  2. CENTRUM SILVER                     /02363801/ [Concomitant]
     Dosage: UNK
     Route: 048
     Dates: start: 20080212
  3. VITAMIN D3 [Concomitant]
     Dosage: 2000 IU, QD
     Route: 048
     Dates: start: 20120528
  4. PROPRANOLOL [Concomitant]
     Dosage: 40 MG, UNK
     Route: 048
     Dates: start: 20130111
  5. FISH OIL [Concomitant]
     Dosage: 1000 MG, UNK
     Route: 048
     Dates: start: 20111003
  6. CENTRUM SILVER [Concomitant]
  7. ALEVE [Concomitant]
     Dosage: ONCE IN AWHILE
     Dates: start: 2013

REACTIONS (6)
  - Muscle tightness [Recovering/Resolving]
  - Mobility decreased [Unknown]
  - Myalgia [Recovering/Resolving]
  - Limb discomfort [Unknown]
  - Pain in extremity [Recovering/Resolving]
  - Musculoskeletal pain [Not Recovered/Not Resolved]
